FAERS Safety Report 21870725 (Version 2)
Quarter: 2023Q1

REPORT INFORMATION
  Report Type: Spontaneous
  Country: US (occurrence: US)
  Receive Date: 20230117
  Receipt Date: 20230121
  Transmission Date: 20230417
  Serious: No
  Sender: FDA-Public Use
  Company Number: US-MICRO LABS LIMITED-ML2023-00187

PATIENT
  Age: 7 Year
  Sex: Male

DRUGS (1)
  1. CROMOLYN SODIUM [Suspect]
     Active Substance: CROMOLYN SODIUM
     Indication: Mast cell activation syndrome
     Dosage: 100 MG/5 ML
     Route: 048

REACTIONS (1)
  - Hypersensitivity [Unknown]
